FAERS Safety Report 6124072-1 (Version None)
Quarter: 2009Q1

REPORT INFORMATION
  Report Type: 
  Country: None (occurrence: None)
  Receive Date: 20090319
  Receipt Date: 20090310
  Transmission Date: 20090719
  Serious: Yes (Other)
  Sender: FDA-Public Use
  Company Number: PHHY2008NO30047

PATIENT
  Sex: Female

DRUGS (1)
  1. EXELON [Suspect]
     Indication: DEMENTIA
     Dosage: 4.6 MG, QD
     Route: 062
     Dates: start: 20080926, end: 20081127

REACTIONS (4)
  - COLOSTOMY [None]
  - ERYSIPELAS [None]
  - OEDEMA PERIPHERAL [None]
  - SKIN HAEMORRHAGE [None]
